FAERS Safety Report 21766936 (Version 1)
Quarter: 2022Q4

REPORT INFORMATION
  Report Type: Spontaneous
  Country: US (occurrence: US)
  Receive Date: 20221222
  Receipt Date: 20221222
  Transmission Date: 20230113
  Serious: No
  Sender: FDA-Public Use
  Company Number: US-DSJP-DSU-2022-145892AA

PATIENT
  Age: 10 Year
  Sex: Female

DRUGS (1)
  1. SAVAYSA [Suspect]
     Active Substance: EDOXABAN TOSYLATE
     Indication: Kawasaki^s disease
     Dosage: UNK
     Route: 065

REACTIONS (2)
  - Coronary artery aneurysm [Unknown]
  - Off label use [Not Recovered/Not Resolved]
